FAERS Safety Report 23673525 (Version 1)
Quarter: 2024Q1

REPORT INFORMATION
  Report Type: Spontaneous
  Country: US (occurrence: US)
  Receive Date: 20240326
  Receipt Date: 20240326
  Transmission Date: 20240410
  Serious: No
  Sender: FDA-Public Use
  Company Number: US-Harrow Eye-2154812

PATIENT
  Sex: Female

DRUGS (1)
  1. VEVYE [Suspect]
     Active Substance: CYCLOSPORINE
     Indication: Corneal disorder

REACTIONS (4)
  - Lacrimation increased [Unknown]
  - Incorrect dose administered by device [Unknown]
  - Eye pain [Unknown]
  - Eye irritation [Unknown]
